FAERS Safety Report 6409712-1 (Version None)
Quarter: 2009Q4

REPORT INFORMATION
  Report Type: 
  Country: None (occurrence: None)
  Receive Date: 20091021
  Receipt Date: 20091021
  Transmission Date: 20100525
  Serious: No
  Sender: FDA-Public Use
  Company Number: None

PATIENT
  Sex: Male
  Weight: 64.9 kg

DRUGS (3)
  1. PEG-L-ASPARAGINASE (K-H) [Suspect]
     Dosage: 6750 MG
  2. VINCRISTINE SULFATE [Suspect]
     Dosage: 10 MG
  3. METHOTREXATE [Suspect]
     Dosage: 140 MG

REACTIONS (2)
  - BLOOD CHOLESTEROL INCREASED [None]
  - BLOOD TRIGLYCERIDES INCREASED [None]
